FAERS Safety Report 19124873 (Version 5)
Quarter: 2022Q3

REPORT INFORMATION
  Report Type: Report from Study
  Country: JP (occurrence: JP)
  Receive Date: 20210413
  Receipt Date: 20220628
  Transmission Date: 20221027
  Serious: Yes (Life-Threatening, Disabling, Other)
  Sender: FDA-Public Use
  Company Number: NVSJ2021JP004992

PATIENT
  Age: 25 Year
  Sex: Female
  Weight: 36.6 kg

DRUGS (4)
  1. ILARIS [Suspect]
     Active Substance: CANAKINUMAB
     Indication: Hypophysitis
     Dosage: 150 MG
     Route: 058
     Dates: start: 20200218, end: 20200218
  2. ILARIS [Suspect]
     Active Substance: CANAKINUMAB
     Dosage: 150 MG
     Route: 058
     Dates: start: 20200323, end: 20200323
  3. PREDONINE [Concomitant]
     Active Substance: PREDNISOLONE
     Indication: Hypophysitis
     Dosage: 18 MG
     Route: 048
     Dates: start: 1995
  4. NEORAL [Concomitant]
     Active Substance: CYCLOSPORINE
     Indication: Hypophysitis
     Dosage: 140 MG
     Route: 048
     Dates: start: 20190823

REACTIONS (2)
  - Interstitial lung disease [Not Recovered/Not Resolved]
  - Product use in unapproved indication [Unknown]

NARRATIVE: CASE EVENT DATE: 20200424
